FAERS Safety Report 5075632-0 (Version None)
Quarter: 2006Q3

REPORT INFORMATION
  Report Type: 
  Country: None (occurrence: None)
  Receive Date: 20060809
  Receipt Date: 20060207
  Transmission Date: 20061208
  Serious: Yes (Hospitalization, Other)
  Sender: FDA-Public Use
  Company Number: PHEH2006US01764

PATIENT
  Age: 35 Year
  Sex: Female

DRUGS (5)
  1. TEGRETOL [Concomitant]
     Indication: BIPOLAR DISORDER
     Dates: start: 20060611
  2. ATARAX [Concomitant]
  3. LORTAB [Concomitant]
  4. SYNTHROID [Concomitant]
  5. TRILEPTAL [Suspect]
     Indication: BIPOLAR DISORDER
     Dates: start: 20030101, end: 20030201

REACTIONS (48)
  - ABDOMINAL PAIN [None]
  - ALANINE AMINOTRANSFERASE INCREASED [None]
  - ANAEMIA [None]
  - ANAL DISCOMFORT [None]
  - BEDRIDDEN [None]
  - BLOOD ALKALINE PHOSPHATASE INCREASED [None]
  - BLOOD LACTATE DEHYDROGENASE INCREASED [None]
  - CARBON DIOXIDE DECREASED [None]
  - CELLULITIS [None]
  - CHOLELITHIASIS [None]
  - CONSTIPATION [None]
  - DEHYDRATION [None]
  - DERMATITIS ATOPIC [None]
  - DRUG ABUSER [None]
  - DRUG ERUPTION [None]
  - DRUG HYPERSENSITIVITY [None]
  - DYSPHAGIA [None]
  - ECZEMA [None]
  - EOSINOPHILIA [None]
  - EPISTAXIS [None]
  - FALL [None]
  - HAEMATOCRIT DECREASED [None]
  - HAEMOGLOBIN DECREASED [None]
  - HYPOKALAEMIA [None]
  - INSOMNIA [None]
  - LIVER FUNCTION TEST ABNORMAL [None]
  - MALAISE [None]
  - NAUSEA [None]
  - NON-CARDIAC CHEST PAIN [None]
  - OEDEMA PERIPHERAL [None]
  - PAIN [None]
  - PANIC ATTACK [None]
  - PHARYNGOLARYNGEAL PAIN [None]
  - PRURITUS [None]
  - PYREXIA [None]
  - RASH MACULO-PAPULAR [None]
  - RED BLOOD CELL SEDIMENTATION RATE INCREASED [None]
  - SKIN BURNING SENSATION [None]
  - SKIN FISSURES [None]
  - SKIN ULCER [None]
  - STOMATITIS [None]
  - TINEA PEDIS [None]
  - VAGINAL PAIN [None]
  - VIRAL INFECTION [None]
  - VIRAL RASH [None]
  - WHITE BLOOD CELL COUNT DECREASED [None]
  - WHITE BLOOD CELL COUNT INCREASED [None]
  - WRIST FRACTURE [None]
